FAERS Safety Report 11390742 (Version 1)
Quarter: 2015Q3

REPORT INFORMATION
  Report Type: Spontaneous
  Country: GB (occurrence: GB)
  Receive Date: 20150818
  Receipt Date: 20150818
  Transmission Date: 20151125
  Serious: Yes (Other)
  Sender: FDA-Public Use
  Company Number: GB-AUROBINDO-AUR-APL-2015-07405

PATIENT
  Age: 5 Decade
  Sex: Male
  Weight: 60 kg

DRUGS (2)
  1. SOTALOL. [Concomitant]
     Active Substance: SOTALOL
     Indication: PRODUCT USED FOR UNKNOWN INDICATION
     Route: 065
  2. METRONIDAZOLE 400MG [Suspect]
     Active Substance: METRONIDAZOLE
     Indication: TOOTH ABSCESS
     Dosage: 400 MG, UNK
     Route: 048
     Dates: start: 20150717

REACTIONS (4)
  - Headache [Recovered/Resolved]
  - Malaise [Unknown]
  - Food interaction [Unknown]
  - Irregular sleep phase [Recovered/Resolved]

NARRATIVE: CASE EVENT DATE: 20150717
